FAERS Safety Report 7715786-8 (Version None)
Quarter: 2011Q3

REPORT INFORMATION
  Report Type: 
  Country: None (occurrence: None)
  Receive Date: 20110829
  Receipt Date: 20110818
  Transmission Date: 20111222
  Serious: Yes (Disabling)
  Sender: FDA-Public Use
  Company Number: US-ELI_LILLY_AND_COMPANY-US201106001452

PATIENT
  Sex: Female

DRUGS (6)
  1. HUMALOG [Suspect]
     Dosage: UNK
  2. ZOLOFT [Concomitant]
     Indication: DEPRESSION
     Dosage: UNK
     Dates: start: 20050101
  3. ZOLOFT [Concomitant]
     Dosage: 50 MG, UNK
  4. ATIVAN [Concomitant]
     Dosage: UNK
  5. HUMULIN N [Suspect]
     Indication: TYPE 2 DIABETES MELLITUS
     Dosage: UNK, UNKNOWN
     Route: 065
     Dates: start: 20020101
  6. HUMALOG [Suspect]
     Indication: TYPE 2 DIABETES MELLITUS
     Dosage: UNK

REACTIONS (4)
  - HYPERTENSION [None]
  - ABDOMINAL PAIN LOWER [None]
  - DRUG DOSE OMISSION [None]
  - MATERNAL EXPOSURE DURING PREGNANCY [None]
